FAERS Safety Report 8521684-2 (Version None)
Quarter: 2012Q3

REPORT INFORMATION
  Report Type: 
  Country: None (occurrence: None)
  Receive Date: 20120719
  Receipt Date: 20120717
  Transmission Date: 20120928
  Serious: Yes (Hospitalization, Other)
  Sender: FDA-Public Use
  Company Number: PHHY2012AU019057

PATIENT
  Sex: Female
  Weight: 91 kg

DRUGS (10)
  1. CLOZARIL [Suspect]
     Indication: SCHIZOPHRENIA
     Dosage: 250 MG, DAILY
     Route: 048
     Dates: start: 20110525
  2. VALIUM [Concomitant]
     Dosage: 5 MG, 1/2 MANE
  3. ARTANE [Concomitant]
     Dosage: 1/2 MANE 1/2 NOCTE
     Route: 048
  4. PRISTAGE [Concomitant]
     Dosage: MANE
     Route: 048
  5. AUGMENTIN '500' [Concomitant]
     Dosage: 500 MG, BID
     Route: 048
     Dates: start: 20120301, end: 20120316
  6. CLOZARIL [Suspect]
     Dosage: 225 MG, DAILY
     Route: 048
  7. LEVODOPA BENSERAZIDE HYDROCHLO [Concomitant]
     Indication: PARKINSONISM
     Dosage: 100 MG, TID
     Route: 048
  8. VENTOLIN TABLET [Concomitant]
     Indication: LUNG ABSCESS
  9. MADOPAR [Concomitant]
     Dosage: 1 TAB TDS
     Route: 048
  10. TRIHEXYPHENIDYL HCL [Concomitant]
     Dosage: 1 MG, BID
     Route: 048

REACTIONS (17)
  - URINARY TRACT INFECTION [None]
  - UPPER RESPIRATORY TRACT INFECTION [None]
  - ANTIPSYCHOTIC DRUG LEVEL INCREASED [None]
  - NEUTROPHIL COUNT INCREASED [None]
  - PYREXIA [None]
  - DYSPNOEA [None]
  - HEART RATE INCREASED [None]
  - RESPIRATORY RATE INCREASED [None]
  - PULMONARY OEDEMA [None]
  - OXYGEN SATURATION DECREASED [None]
  - LIVER FUNCTION TEST ABNORMAL [None]
  - BLOOD GLUCOSE INCREASED [None]
  - PNEUMONIA [None]
  - ORTHOSTATIC HYPOTENSION [None]
  - BLOOD URIC ACID DECREASED [None]
  - WHITE BLOOD CELL COUNT INCREASED [None]
  - MALAISE [None]
